FAERS Safety Report 23816281 (Version 3)
Quarter: 2025Q4

REPORT INFORMATION
  Report Type: Spontaneous
  Country: US (occurrence: US)
  Receive Date: 20240503
  Receipt Date: 20251219
  Transmission Date: 20260118
  Serious: Yes (Disabling, Other)
  Sender: PFIZER
  Company Number: US-PFIZER INC-202400098689

PATIENT
  Age: 73 Year
  Sex: Female
  Weight: 68.04 kg

DRUGS (1)
  1. PAXLOVID [Suspect]
     Active Substance: NIRMATRELVIR\RITONAVIR
     Indication: COVID-19 treatment
     Dosage: MORNING AND AFTERNOON
     Dates: start: 202206, end: 202206

REACTIONS (10)
  - Neuropathy peripheral [Not Recovered/Not Resolved]
  - Peripheral nerve injury [Unknown]
  - Autonomic neuropathy [Not Recovered/Not Resolved]
  - Hypertension [Unknown]
  - Tendon rupture [Not Recovered/Not Resolved]
  - Myalgia [Not Recovered/Not Resolved]
  - Asthenia [Recovering/Resolving]
  - Palpitations [Unknown]
  - Loss of personal independence in daily activities [Unknown]
  - Sleep disorder [Unknown]

NARRATIVE: CASE EVENT DATE: 20220101
